FAERS Safety Report 4544565-8 (Version None)
Quarter: 2005Q1

REPORT INFORMATION
  Report Type: 
  Country: None (occurrence: None)
  Receive Date: 20050104
  Receipt Date: 20041223
  Transmission Date: 20050727
  Serious: Yes (Other)
  Sender: FDA-Public Use
  Company Number: 2004119967

PATIENT
  Sex: Female
  Weight: 81.6475 kg

DRUGS (2)
  1. BENGAY ULTRA STRENGTH PATCH (MENTHOL) [Suspect]
     Indication: BACK DISORDER
     Dosage: INTERMITTENTLY, TOPICAL
     Route: 061
  2. LETROZOLE (LETROZOLE) [Concomitant]

REACTIONS (1)
  - BREAST CANCER FEMALE [None]
